FAERS Safety Report 4508731-X (Version None)
Quarter: 2004Q4

REPORT INFORMATION
  Report Type: 
  Country: None (occurrence: None)
  Receive Date: 20041123
  Receipt Date: 20040623
  Transmission Date: 20050328
  Serious: No
  Sender: FDA-Public Use
  Company Number: US-GLAXOSMITHKLINE-A0515733A

PATIENT
  Age: 61 Year
  Sex: Female
  Weight: 70.5 kg

DRUGS (5)
  1. WELLBUTRIN SR [Suspect]
     Dosage: 150MG TWICE PER DAY
     Route: 048
     Dates: start: 20040515, end: 20040530
  2. TOPROL-XL [Concomitant]
  3. ISORDIL [Concomitant]
  4. NIASPAN [Concomitant]
  5. ZETIA [Concomitant]

REACTIONS (5)
  - ERYTHEMA [None]
  - GINGIVAL PAIN [None]
  - LIP BLISTER [None]
  - MOUTH ULCERATION [None]
  - PAIN IN EXTREMITY [None]
